FAERS Safety Report 6707169-4 (Version None)
Quarter: 2010Q2

REPORT INFORMATION
  Report Type: 
  Country: None (occurrence: None)
  Receive Date: 20100503
  Receipt Date: 20091003
  Transmission Date: 20101027
  Serious: No
  Sender: FDA-Public Use
  Company Number: US-ASTRAZENECA-2009SE18043

PATIENT
  Sex: Male

DRUGS (2)
  1. NEXIUM [Suspect]
  2. TOPROL-XL [Suspect]
     Route: 048

REACTIONS (2)
  - SWELLING [None]
  - WEIGHT INCREASED [None]
